FAERS Safety Report 8556897-7 (Version None)
Quarter: 2012Q3

REPORT INFORMATION
  Report Type: 
  Country: None (occurrence: None)
  Receive Date: 20120724
  Receipt Date: 20120724
  Transmission Date: 20120928
  Serious: Yes (Other)
  Sender: FDA-Public Use
  Company Number: None

PATIENT
  Age: 53 Year
  Sex: Male
  Weight: 81.6475 kg

DRUGS (1)
  1. ZYRTEC [Suspect]
     Indication: HYPERSENSITIVITY
     Dosage: 1 PILL EVERY OTHER DAY
     Dates: start: 20111015, end: 20120722

REACTIONS (3)
  - ARTHRALGIA [None]
  - TINNITUS [None]
  - PRURITUS [None]
